FAERS Safety Report 5800074-7 (Version None)
Quarter: 2008Q3

REPORT INFORMATION
  Report Type: 
  Country: None (occurrence: None)
  Receive Date: 20080703
  Receipt Date: 20080627
  Transmission Date: 20090109
  Serious: Yes (Death)
  Sender: FDA-Public Use
  Company Number: US-ROCHE-573097

PATIENT
  Sex: Female
  Weight: 90.7 kg

DRUGS (2)
  1. CAPECITABINE [Suspect]
     Indication: COLORECTAL CANCER
     Dosage: 2000MG IN THE MORNING AND 2000 MG IN EVENING, 8 TABLETS DAILY
     Route: 048
     Dates: start: 20071001
  2. GLIPIZIDE [Concomitant]

REACTIONS (1)
  - CEREBROVASCULAR ACCIDENT [None]
